FAERS Safety Report 15761790 (Version 2)
Quarter: 2019Q1

REPORT INFORMATION
  Report Type: Spontaneous
  Country: IT (occurrence: IT)
  Receive Date: 20181226
  Receipt Date: 20190131
  Transmission Date: 20190417
  Serious: Yes (Hospitalization)
  Sender: FDA-Public Use
  Company Number: PHHY2018IT192044

PATIENT
  Age: 84 Year
  Sex: Female

DRUGS (1)
  1. RISPERIDONE. [Suspect]
     Active Substance: RISPERIDONE
     Indication: ABNORMAL BEHAVIOUR
     Dosage: 10 MG, QD
     Route: 065

REACTIONS (4)
  - Dementia Alzheimer^s type [Unknown]
  - Agitation [Unknown]
  - Akathisia [Recovering/Resolving]
  - Restlessness [Unknown]
